FAERS Safety Report 5671244-6 (Version None)
Quarter: 2008Q1

REPORT INFORMATION
  Report Type: 
  Country: None (occurrence: None)
  Receive Date: 20080318
  Receipt Date: 20080310
  Transmission Date: 20080703
  Serious: Yes (Hospitalization, Other)
  Sender: FDA-Public Use
  Company Number: US-PFIZER INC-2008000460

PATIENT
  Sex: Male

DRUGS (2)
  1. NORVASC [Suspect]
     Route: 048
  2. NORVASC [Suspect]

REACTIONS (4)
  - CARDIAC FAILURE [None]
  - CEREBROVASCULAR ACCIDENT [None]
  - OEDEMA PERIPHERAL [None]
  - PRURITUS [None]
